FAERS Safety Report 6725258-5 (Version None)
Quarter: 2010Q2

REPORT INFORMATION
  Report Type: 
  Country: None (occurrence: None)
  Receive Date: 20100513
  Receipt Date: 20100513
  Transmission Date: 20101027
  Serious: Yes (Disabling)
  Sender: FDA-Public Use
  Company Number: None

PATIENT
  Sex: Male
  Weight: 67.1324 kg

DRUGS (2)
  1. ASPIRIN [Suspect]
  2. ZOLOFT [Suspect]
     Indication: ANXIETY
     Dosage: 150 MG QD ORAL
     Route: 048
     Dates: start: 20090920

REACTIONS (1)
  - RENAL HAEMORRHAGE [None]
